FAERS Safety Report 4443663-7 (Version None)
Quarter: 2004Q3

REPORT INFORMATION
  Report Type: 
  Country: None (occurrence: None)
  Receive Date: 20040908
  Receipt Date: 20040813
  Transmission Date: 20050211
  Serious: Yes (Disabling)
  Sender: FDA-Public Use
  Company Number: JP-GLAXOSMITHKLINE-B0342698A

PATIENT
  Age: 32 Year
  Sex: Female

DRUGS (5)
  1. PAXIL [Suspect]
     Indication: DEPRESSION
     Route: 048
     Dates: start: 20021022
  2. SOLANAX [Suspect]
     Indication: ANXIETY
     Dosage: .4MG PER DAY
     Route: 048
     Dates: start: 20030422, end: 20031021
  3. SILECE [Suspect]
     Indication: INSOMNIA
     Dosage: 2MG PER DAY
     Route: 048
     Dates: start: 20030422, end: 20031021
  4. HALCION [Suspect]
     Indication: INSOMNIA
     Dosage: .125MG PER DAY
     Route: 048
     Dates: start: 20030422, end: 20031021
  5. LEXOTAN [Concomitant]
     Indication: ANXIETY
     Route: 048
     Dates: start: 20030422, end: 20031021

REACTIONS (3)
  - DEPRESSIVE SYMPTOM [None]
  - DISEASE RECURRENCE [None]
  - IMPULSIVE BEHAVIOUR [None]
